FAERS Safety Report 13601187 (Version 4)
Quarter: 2017Q4

REPORT INFORMATION
  Report Type: Report from Study
  Country: JP (occurrence: JP)
  Receive Date: 20170601
  Receipt Date: 20171212
  Transmission Date: 20180320
  Serious: Yes (Hospitalization, Other)
  Sender: FDA-Public Use
  Company Number: PHJP2017JP017363

PATIENT
  Age: 70 Year
  Sex: Male
  Weight: 52.6 kg

DRUGS (13)
  1. CERTICAN [Suspect]
     Active Substance: EVEROLIMUS
     Dosage: 1 MG, QD
     Route: 048
     Dates: start: 20160617, end: 20160630
  2. CERTICAN [Suspect]
     Active Substance: EVEROLIMUS
     Dosage: 0.5 MG, QD
     Route: 048
     Dates: start: 20160701, end: 20170223
  3. TACROLIMUS. [Concomitant]
     Active Substance: TACROLIMUS
     Dosage: 6 MG, UNK
     Route: 065
     Dates: start: 20150723
  4. TACROLIMUS. [Concomitant]
     Active Substance: TACROLIMUS
     Indication: PRODUCT USED FOR UNKNOWN INDICATION
     Dosage: 6 MG, UNK
     Route: 065
     Dates: start: 20150413
  5. MYCOPHENOLATE MOFETIL. [Concomitant]
     Active Substance: MYCOPHENOLATE MOFETIL
     Indication: PRODUCT USED FOR UNKNOWN INDICATION
     Dosage: UNK
     Route: 065
  6. TACROLIMUS. [Concomitant]
     Active Substance: TACROLIMUS
     Dosage: 6 MG, UNK
     Route: 065
     Dates: start: 20150520
  7. TACROLIMUS. [Concomitant]
     Active Substance: TACROLIMUS
     Dosage: 6 MG, UNK
     Route: 065
     Dates: start: 20151022
  8. TACROLIMUS. [Concomitant]
     Active Substance: TACROLIMUS
     Dosage: 0.5 MG, UNK
     Route: 065
     Dates: start: 20170223
  9. MYCOPHENOLATE MOFETIL. [Concomitant]
     Active Substance: MYCOPHENOLATE MOFETIL
     Dosage: 500 MG, UNK
     Route: 065
     Dates: start: 20170324
  10. CERTICAN [Suspect]
     Active Substance: EVEROLIMUS
     Indication: RENAL TRANSPLANT
     Dosage: 1.5 MG, QD
     Route: 048
     Dates: start: 20150416, end: 20150910
  11. CERTICAN [Suspect]
     Active Substance: EVEROLIMUS
     Dosage: 3 MG, QD
     Route: 048
     Dates: start: 20150911, end: 20150923
  12. CERTICAN [Suspect]
     Active Substance: EVEROLIMUS
     Dosage: 2 MG, QD
     Route: 048
     Dates: start: 20150924
  13. TACROLIMUS. [Concomitant]
     Active Substance: TACROLIMUS
     Dosage: 1 MG, UNK
     Route: 065
     Dates: start: 20170324

REACTIONS (7)
  - Oedema [Recovering/Resolving]
  - Diabetes mellitus [Recovering/Resolving]
  - Hypoproteinaemia [Recovering/Resolving]
  - Dehydration [Unknown]
  - Proteinuria [Recovering/Resolving]
  - Pleural effusion [Recovering/Resolving]
  - Renal impairment [Recovering/Resolving]

NARRATIVE: CASE EVENT DATE: 20160620
